FAERS Safety Report 25504208 (Version 1)
Quarter: 2025Q3

REPORT INFORMATION
  Report Type: Spontaneous
  Country: US (occurrence: None)
  Receive Date: 20250701
  Receipt Date: 20250701
  Transmission Date: 20251020
  Serious: Yes (Life-Threatening, Hospitalization, Other)
  Sender: FDA-CTU
  Company Number: None

PATIENT
  Age: 26 Year
  Sex: Male
  Weight: 113.4 kg

DRUGS (3)
  1. 7-HYDROXYMITRAGYNINE [Suspect]
     Active Substance: 7-HYDROXYMITRAGYNINE
     Indication: Drug dependence
     Route: 048
  2. High blood pressure meds [Concomitant]
  3. SUBOXONE [Concomitant]
     Active Substance: BUPRENORPHINE HYDROCHLORIDE\NALOXONE HYDROCHLORIDE

REACTIONS (6)
  - Anal incontinence [None]
  - Overdose [None]
  - Respiratory arrest [None]
  - Anger [None]
  - Dysarthria [None]
  - Loss of consciousness [None]

NARRATIVE: CASE EVENT DATE: 20250606
